FAERS Safety Report 10297118 (Version 3)
Quarter: 2015Q2

REPORT INFORMATION
  Report Type: Spontaneous
  Country: CH (occurrence: CH)
  Receive Date: 20140711
  Receipt Date: 20150527
  Transmission Date: 20150821
  Serious: Yes (Disabling, Other)
  Sender: FDA-Public Use
  Company Number: CH-PFIZER INC-2014103111

PATIENT
  Age: 39 Year
  Sex: Female

DRUGS (4)
  1. SAYANA [Suspect]
     Active Substance: MEDROXYPROGESTERONE
     Dosage: 1 DF, EVERY 3 MONTHS
     Route: 058
     Dates: start: 20131015
  2. SAYANA [Suspect]
     Active Substance: MEDROXYPROGESTERONE
     Dosage: 1 DF, EVERY 3 MONTHS
     Route: 058
     Dates: start: 20130715
  3. SAYANA [Suspect]
     Active Substance: MEDROXYPROGESTERONE
     Indication: CHEMICAL CONTRACEPTION
     Dosage: 1 DF, EVERY 3 MONTHS
     Route: 058
     Dates: start: 20130422
  4. SAYANA [Suspect]
     Active Substance: MEDROXYPROGESTERONE
     Dosage: 1 DF, EVERY 3 MONTHS
     Route: 058
     Dates: start: 20140106

REACTIONS (2)
  - Injection site reaction [Not Recovered/Not Resolved]
  - Injection site atrophy [Not Recovered/Not Resolved]

NARRATIVE: CASE EVENT DATE: 20140331
